FAERS Safety Report 25570794 (Version 4)
Quarter: 2025Q4

REPORT INFORMATION
  Report Type: Report from Study
  Country: US (occurrence: None)
  Receive Date: 20250717
  Receipt Date: 20251030
  Transmission Date: 20260118
  Serious: Yes (Other)
  Sender: UCB
  Company Number: US-UCBSA-2025043022

PATIENT
  Age: 22 Year

DRUGS (19)
  1. FENFLURAMINE [Suspect]
     Active Substance: FENFLURAMINE
     Indication: Lennox-Gastaut syndrome
     Dosage: UNK
  2. FENFLURAMINE [Suspect]
     Active Substance: FENFLURAMINE
     Dosage: 6 MILLILITER, 2X/DAY (BID)
  3. FENFLURAMINE [Suspect]
     Active Substance: FENFLURAMINE
     Dosage: 6 MILLILITER, 2X/DAY (BID) (26.4 MG/DAY)
  4. FENFLURAMINE [Suspect]
     Active Substance: FENFLURAMINE
     Dosage: 6 MILLILITER, 2X/DAY (BID)
  5. LACOSAMIDE [Suspect]
     Active Substance: LACOSAMIDE
     Indication: Epilepsy
     Dosage: 250 MILLIGRAM, 2X/DAY (BID)
  6. DIAZEPAM [Suspect]
     Active Substance: DIAZEPAM
     Indication: Seizure
     Dosage: 2 SPRAYS 15 MG 1 TIME AS NEEDED
  7. DIAZEPAM [Suspect]
     Active Substance: DIAZEPAM
     Dosage: 2 SPRAYS 15 MG 1 TIME AS NEEDED
  8. LEVOCARNITINE [Suspect]
     Active Substance: LEVOCARNITINE
     Indication: Myoclonic epilepsy
     Dosage: 330 MILLIGRAM, 3X/DAY (TID)
  9. CANNABIDIOL\HERBALS [Concomitant]
     Active Substance: CANNABIDIOL\HERBALS
     Indication: Product used for unknown indication
     Dosage: 6 MILLIGRAM, 3X/DAY (TID)
  10. CANNABIDIOL\HERBALS [Concomitant]
     Active Substance: CANNABIDIOL\HERBALS
     Dosage: 10 MILLIGRAM, 3X/DAY (TID)
  11. ERGOCALCIFEROL [Concomitant]
     Active Substance: ERGOCALCIFEROL
     Indication: Product used for unknown indication
     Dosage: 2000 INTERNATIONAL UNIT, DAILY
  12. FIBER THERAPY (CALCIUM POLYCARBOPHIL) [Concomitant]
     Active Substance: CALCIUM POLYCARBOPHIL
     Indication: Product used for unknown indication
     Dosage: 7 G DAILY
  13. magnesium citrate powder [Concomitant]
     Indication: Product used for unknown indication
     Dosage: 70 MG DAILY
  14. MELATONIN [Concomitant]
     Active Substance: MELATONIN
     Indication: Product used for unknown indication
     Dosage: 6 MG AT BEDTIME
  15. MELOXICAM [Concomitant]
     Active Substance: MELOXICAM
     Indication: Product used for unknown indication
     Dosage: 7.5 MG DAILY
  16. PHYTONADIONE [Concomitant]
     Active Substance: PHYTONADIONE
     Indication: Product used for unknown indication
     Dosage: 200 MCG
  17. PROBIOTICS NOS [Concomitant]
     Active Substance: PROBIOTICS NOS
     Indication: Product used for unknown indication
  18. SENNOSIDES [Concomitant]
     Active Substance: SENNOSIDES
     Indication: Product used for unknown indication
     Dosage: 15 MG AS NEEDED
  19. MIDAZOLAM HYDROCHLORIDE [Concomitant]
     Active Substance: MIDAZOLAM HYDROCHLORIDE
     Indication: Product used for unknown indication

REACTIONS (10)
  - Generalised tonic-clonic seizure [Unknown]
  - Seizure [Not Recovered/Not Resolved]
  - Pulmonary valve incompetence [Unknown]
  - Myalgia [Unknown]
  - Infection [Unknown]
  - Insomnia [Not Recovered/Not Resolved]
  - Constipation [Unknown]
  - Back pain [Unknown]
  - Sinus tachycardia [Unknown]
  - Therapeutic product effect incomplete [Unknown]
